FAERS Safety Report 7599826-5 (Version None)
Quarter: 2011Q3

REPORT INFORMATION
  Report Type: 
  Country: None (occurrence: None)
  Receive Date: 20110706
  Receipt Date: 20110706
  Transmission Date: 20111222
  Serious: Yes (Life-Threatening, Other)
  Sender: FDA-Public Use
  Company Number: None

PATIENT
  Weight: 82.1011 kg

DRUGS (1)
  1. HEMOPHILIA M 2000 BAXTER [Suspect]
     Indication: HAEMORRHAGE
     Dosage: 2000 WHEN NEEDED OTHER
     Route: 050

REACTIONS (4)
  - HEPATITIS C [None]
  - TRANSMISSION OF AN INFECTIOUS AGENT VIA A MEDICINAL PRODUCT [None]
  - HEPATIC CIRRHOSIS [None]
  - HEPATIC NEOPLASM MALIGNANT [None]
